FAERS Safety Report 5741557-8 (Version None)
Quarter: 2008Q2

REPORT INFORMATION
  Report Type: 
  Country: None (occurrence: None)
  Receive Date: 20080519
  Receipt Date: 20080318
  Transmission Date: 20081010
  Serious: No
  Sender: FDA-Public Use
  Company Number: US-BAYER-200817460NA

PATIENT
  Age: 34 Year
  Sex: Female
  Weight: 137 kg

DRUGS (4)
  1. ULTRAVIST 370 [Suspect]
     Indication: COMPUTERISED TOMOGRAM ABDOMEN
     Route: 042
     Dates: start: 20080317, end: 20080317
  2. READI-CAT 2 [Concomitant]
     Route: 048
     Dates: start: 20080301, end: 20080301
  3. DIOVAN [Concomitant]
  4. BACTRIM [Concomitant]

REACTIONS (2)
  - PRURITUS [None]
  - URTICARIA [None]
